FAERS Safety Report 4422889-2 (Version None)
Quarter: 2004Q3

REPORT INFORMATION
  Report Type: 
  Country: None (occurrence: None)
  Receive Date: 20040811
  Receipt Date: 20040730
  Transmission Date: 20050211
  Serious: Yes (Death, Other)
  Sender: FDA-Public Use
  Company Number: JP-JNJFOC-20040403614

PATIENT
  Sex: Male

DRUGS (3)
  1. DUROTEP [Suspect]
     Route: 062
  2. DUROTEP [Suspect]
     Route: 062
  3. DUROTEP [Suspect]
     Indication: CANCER PAIN
     Route: 062

REACTIONS (6)
  - CONSTIPATION [None]
  - ILEUS [None]
  - INADEQUATE ANALGESIA [None]
  - INTESTINAL OBSTRUCTION [None]
  - SEPSIS [None]
  - SOMNOLENCE [None]
